FAERS Safety Report 11491847 (Version 1)
Quarter: 2015Q3

REPORT INFORMATION
  Report Type: Spontaneous
  Country: DE (occurrence: DE)
  Receive Date: 20150910
  Receipt Date: 20150910
  Transmission Date: 20151125
  Serious: Yes (Other)
  Sender: FDA-Public Use
  Company Number: DE-TEVA-591030GER

PATIENT
  Age: 48 Year
  Sex: Male

DRUGS (1)
  1. SILDENAFIL ABZ 100 MG FILMTABLETTEN [Suspect]
     Active Substance: SILDENAFIL
     Indication: ERECTILE DYSFUNCTION
     Route: 048

REACTIONS (4)
  - Cardiovascular disorder [Recovered/Resolved]
  - Nasopharyngitis [Recovered/Resolved]
  - Circulatory collapse [Recovered/Resolved]
  - Hyperhidrosis [Recovered/Resolved]

NARRATIVE: CASE EVENT DATE: 20150818
